FAERS Safety Report 11176541 (Version 8)
Quarter: 2016Q2

REPORT INFORMATION
  Report Type: Spontaneous
  Country: JP (occurrence: JP)
  Receive Date: 20150610
  Receipt Date: 20160621
  Transmission Date: 20160815
  Serious: Yes (Hospitalization)
  Sender: FDA-Public Use
  Company Number: JP-ROCHE-1590336

PATIENT
  Age: 5 Year
  Sex: Female
  Weight: 17.7 kg

DRUGS (17)
  1. ROCEPHIN [Suspect]
     Active Substance: CEFTRIAXONE SODIUM
     Indication: ENDOCARDITIS BACTERIAL
     Route: 041
     Dates: start: 20141216, end: 20150105
  2. CARBENIN [Concomitant]
     Active Substance: BETAMIPRON\PANIPENEM
     Indication: ENDOCARDITIS BACTERIAL
     Dosage: OTHER PURPOSES: SEPTICEMIA
     Route: 041
     Dates: start: 20141211, end: 20141216
  3. ROCEPHIN [Suspect]
     Active Substance: CEFTRIAXONE SODIUM
     Indication: ENDOCARDITIS BACTERIAL
     Route: 041
     Dates: start: 20141118, end: 20141118
  4. DOPAMINE [Concomitant]
     Active Substance: DOPAMINE\DOPAMINE HYDROCHLORIDE
     Indication: CARDIAC FAILURE
     Route: 042
     Dates: start: 20150108, end: 20150109
  5. HANP [Concomitant]
     Active Substance: CARPERITIDE
     Indication: CARDIAC FAILURE
     Route: 042
     Dates: start: 20150108, end: 20150109
  6. LASIX [Concomitant]
     Active Substance: FUROSEMIDE
     Indication: VENTRICULAR SEPTAL DEFECT
     Route: 048
     Dates: start: 20140610
  7. ALDACTONE A [Concomitant]
     Active Substance: SPIRONOLACTONE
     Indication: VENTRICULAR SEPTAL DEFECT
     Route: 048
     Dates: start: 20140610
  8. ROCEPHIN [Suspect]
     Active Substance: CEFTRIAXONE SODIUM
     Indication: ENDOCARDITIS BACTERIAL
  9. CARBENIN [Concomitant]
     Active Substance: BETAMIPRON\PANIPENEM
     Indication: POST PROCEDURAL INFECTION
     Route: 041
     Dates: start: 20150111, end: 20150124
  10. AMIKACINE [Concomitant]
     Active Substance: AMIKACIN
     Indication: POST PROCEDURAL INFECTION
     Route: 042
     Dates: start: 20150108, end: 20150111
  11. FUROSEMIDE. [Concomitant]
     Active Substance: FUROSEMIDE
     Indication: CARDIAC FAILURE
     Route: 042
     Dates: start: 20150108, end: 20150111
  12. SOLDACTONE [Concomitant]
     Active Substance: CANRENOATE POTASSIUM
     Indication: CARDIAC FAILURE
     Route: 042
     Dates: start: 20150108, end: 20150111
  13. ROCEPHIN [Suspect]
     Active Substance: CEFTRIAXONE SODIUM
     Indication: ENDOCARDITIS BACTERIAL
     Route: 041
     Dates: start: 20141126, end: 20141211
  14. SULBACILLIN (JAPAN) [Concomitant]
     Active Substance: AMPICILLIN SODIUM\SULBACTAM SODIUM
     Indication: ENDOCARDITIS BACTERIAL
     Dosage: OTHER PURPOSES: SEPTICEMIA
     Route: 042
     Dates: start: 20141121, end: 20141127
  15. MYOCOR [Concomitant]
     Active Substance: NITROGLYCERIN
     Indication: CARDIAC FAILURE
     Route: 042
     Dates: start: 20150108, end: 20150109
  16. LASIX [Concomitant]
     Active Substance: FUROSEMIDE
     Indication: VENTRICULAR SEPTAL DEFECT
     Route: 048
     Dates: start: 201001
  17. ALDACTONE A [Concomitant]
     Active Substance: SPIRONOLACTONE
     Indication: VENTRICULAR SEPTAL DEFECT
     Route: 048
     Dates: start: 201001

REACTIONS (2)
  - Bile duct stone [Recovering/Resolving]
  - Cholelithiasis [Not Recovered/Not Resolved]

NARRATIVE: CASE EVENT DATE: 20150525
